FAERS Safety Report 9380759 (Version 1)
Quarter: 2013Q3

REPORT INFORMATION
  Report Type: Spontaneous
  Country: US (occurrence: US)
  Receive Date: 20130702
  Receipt Date: 20130702
  Transmission Date: 20140515
  Serious: No
  Sender: FDA-Public Use
  Company Number: US-PFIZER INC-2013196033

PATIENT
  Age: 59 Year
  Sex: Female
  Weight: 104.31 kg

DRUGS (3)
  1. CELEBREX [Suspect]
     Indication: ARTHRITIS
     Dosage: 200 MG, 1X/DAY
     Route: 048
     Dates: start: 2011
  2. NEURONTIN [Suspect]
     Indication: NEURALGIA
     Dosage: 600 MG, 2X/DAY
  3. TRAMADOL [Concomitant]
     Dosage: UNK

REACTIONS (2)
  - Headache [Unknown]
  - Weight decreased [Unknown]
